FAERS Safety Report 6227574-2 (Version None)
Quarter: 2009Q2

REPORT INFORMATION
  Report Type: 
  Country: None (occurrence: None)
  Receive Date: 20090612
  Receipt Date: 20090605
  Transmission Date: 20091009
  Serious: No
  Sender: FDA-Public Use
  Company Number: US-B.I. PHARMACEUTICALS,INC./RIDGEFIELD-2009-BP-06950BP

PATIENT
  Sex: Female
  Weight: 81.8 kg

DRUGS (3)
  1. ZANTAC 75 [Suspect]
     Indication: GASTRIC ULCER
     Dosage: 75MG
     Route: 048
     Dates: start: 20090605, end: 20090605
  2. ZANTAC 150 [Suspect]
     Indication: GASTRIC ULCER
     Route: 048
     Dates: start: 20080101
  3. ZANTAC [Concomitant]
     Indication: GASTRIC ULCER
     Dosage: 150MG
     Route: 048
     Dates: start: 20080101, end: 20090101

REACTIONS (1)
  - DRUG INEFFECTIVE [None]
